FAERS Safety Report 20935538 (Version 1)
Quarter: 2022Q2

REPORT INFORMATION
  Report Type: Other
  Country: NI (occurrence: NI)
  Receive Date: 20220609
  Receipt Date: 20220609
  Transmission Date: 20220721
  Serious: No
  Sender: FDA-Public Use
  Company Number: NI-TOLMAR, INC.-22NI034584

PATIENT
  Age: 83 Year
  Sex: Male

DRUGS (1)
  1. ELIGARD [Suspect]
     Active Substance: LEUPROLIDE ACETATE
     Indication: Prostate cancer
     Dosage: 22.5 MILLIGRAM, Q 3 MONTH
     Route: 058
     Dates: start: 2021

REACTIONS (1)
  - Hypoacusis [Not Recovered/Not Resolved]

NARRATIVE: CASE EVENT DATE: 20210901
